FAERS Safety Report 19203944 (Version 5)
Quarter: 2021Q3

REPORT INFORMATION
  Report Type: Report from Study
  Country: CO (occurrence: CO)
  Receive Date: 20210503
  Receipt Date: 20210917
  Transmission Date: 20211014
  Serious: Yes (Death, Hospitalization)
  Sender: FDA-Public Use
  Company Number: CO-BIOGEN-2021BI01005692

PATIENT
  Age: 82 Year
  Sex: Male
  Weight: 54 kg

DRUGS (9)
  1. PLEGRIDY [Suspect]
     Active Substance: PEGINTERFERON BETA-1A
     Route: 058
     Dates: start: 20190206
  2. ACETAMINOPHEN. [Concomitant]
     Active Substance: ACETAMINOPHEN
     Indication: PAIN
     Dosage: AS REQUIRED
     Route: 048
     Dates: start: 2016
  3. SERTRALINE [Concomitant]
     Active Substance: SERTRALINE HYDROCHLORIDE
     Indication: PRODUCT USED FOR UNKNOWN INDICATION
     Dosage: 100 MG OF SERTRALINE EVERY MORNING
     Route: 065
  4. CANNABIDIOL [Concomitant]
     Active Substance: CANNABIDIOL
     Indication: PRODUCT USED FOR UNKNOWN INDICATION
     Dosage: CANNABIDIOL TITLED UP TO 34 APPLICATIONS OF ORAL SPRAY IN THE MORNING AND 5 APPLICATIONS OF ORAL ...
     Route: 048
  5. PLEGRIDY [Suspect]
     Active Substance: PEGINTERFERON BETA-1A
     Indication: MULTIPLE SCLEROSIS
     Route: 058
     Dates: start: 2018, end: 202107
  6. LOSTARAN [Concomitant]
     Indication: HYPERTENSION
     Route: 048
     Dates: start: 2018
  7. VITAMIN D [Concomitant]
     Active Substance: VITAMIN D NOS
     Indication: PRODUCT USED FOR UNKNOWN INDICATION
     Dosage: VITAMIN D 2000 IU EVERY DAY.
     Route: 065
  8. HYDROCHLOROTHIAZIDE. [Concomitant]
     Active Substance: HYDROCHLOROTHIAZIDE
     Indication: HYPERTENSION
     Route: 048
     Dates: start: 2018
  9. LOPERAMIDE [Concomitant]
     Active Substance: LOPERAMIDE
     Indication: PRODUCT USED FOR UNKNOWN INDICATION
     Dosage: 2 MG OF LOPERAMIDE EVERY 12 HOURS
     Route: 065

REACTIONS (12)
  - Staring [Unknown]
  - Cystitis haemorrhagic [Unknown]
  - Urinary tract infection [Recovered/Resolved]
  - Motor dysfunction [Recovered/Resolved]
  - Kidney infection [Unknown]
  - Micturition disorder [Not Recovered/Not Resolved]
  - Renal failure [Unknown]
  - Bladder obstruction [Unknown]
  - Diarrhoea [Unknown]
  - Death [Fatal]
  - Aphasia [Recovered/Resolved]
  - Haemorrhage urinary tract [Recovered/Resolved]

NARRATIVE: CASE EVENT DATE: 2021
